FAERS Safety Report 5248925-1 (Version None)
Quarter: 2007Q1

REPORT INFORMATION
  Report Type: 
  Country: None (occurrence: None)
  Receive Date: 20070228
  Receipt Date: 20060511
  Transmission Date: 20070707
  Serious: Yes (Hospitalization)
  Sender: FDA-Public Use
  Company Number: US-GLAXOSMITHKLINE-A0602150A

PATIENT
  Age: 42 Year
  Sex: Female

DRUGS (5)
  1. ZIAGEN [Suspect]
     Indication: HIV INFECTION
     Dosage: 1TAB TWICE PER DAY
     Route: 048
  2. ZERIT [Concomitant]
  3. NORVIR [Concomitant]
  4. TIPRANAVIR [Concomitant]
  5. PAXIL [Concomitant]

REACTIONS (10)
  - ARTHROPATHY [None]
  - ASTHENIA [None]
  - BLOOD LACTIC ACID INCREASED [None]
  - HYPERSENSITIVITY [None]
  - INFLUENZA LIKE ILLNESS [None]
  - MALAISE [None]
  - MYALGIA [None]
  - PYREXIA [None]
  - RASH [None]
  - URTICARIA [None]
